FAERS Safety Report 20510356 (Version 2)
Quarter: 2022Q1

REPORT INFORMATION
  Report Type: Spontaneous
  Country: RU (occurrence: RU)
  Receive Date: 20220224
  Receipt Date: 20220309
  Transmission Date: 20220423
  Serious: Yes (Other)
  Sender: FDA-Public Use
  Company Number: RU-BAYER-2022A026543

PATIENT

DRUGS (2)
  1. XARELTO [Suspect]
     Active Substance: RIVAROXABAN
     Indication: Atrial fibrillation
     Dosage: 15 MG
     Route: 048
     Dates: start: 202103
  2. XARELTO [Suspect]
     Active Substance: RIVAROXABAN
     Indication: Infarction
     Route: 048

REACTIONS (4)
  - Gastric ulcer [Not Recovered/Not Resolved]
  - Epistaxis [Not Recovered/Not Resolved]
  - Tongue haemorrhage [Unknown]
  - Abdominal pain upper [Unknown]
